FAERS Safety Report 8831117 (Version 1)
Quarter: 2012Q4

REPORT INFORMATION
  Report Type: 
  Country: US (occurrence: US)
  Receive Date: 20121009
  Receipt Date: 20121009
  Transmission Date: 20130627
  Serious: Yes (Hospitalization, Disabling)
  Sender: FDA-Public Use
  Company Number: PHEH2012US013415

PATIENT
  Age: 25 Year
  Sex: Female

DRUGS (13)
  1. AFINITOR [Suspect]
     Indication: TUBEROUS SCLEROSIS
     Dosage: 5 mg, UNK
     Route: 048
     Dates: start: 20120605
  2. AFINITOR [Suspect]
     Dosage: 7.5 mg, daily
     Route: 048
  3. AFINITOR [Suspect]
     Dosage: 5 mg, daily
     Route: 048
     Dates: end: 20120918
  4. KLONOPIN [Concomitant]
  5. CALCIUM [Concomitant]
  6. CLONIDINE [Concomitant]
  7. TOPAMAX [Concomitant]
  8. VITAMIN D [Concomitant]
  9. KEPPRA [Concomitant]
  10. GEODON [Concomitant]
  11. LEVOXYL [Concomitant]
  12. TRAZODONE [Concomitant]
  13. DEPO PROVERA [Concomitant]

REACTIONS (9)
  - Burns third degree [Unknown]
  - Angiofibroma [Unknown]
  - Drug level decreased [Unknown]
  - Diarrhoea [Recovered/Resolved]
  - Fatigue [Unknown]
  - Weight increased [Unknown]
  - Vomiting [Recovered/Resolved]
  - Rash [Not Recovered/Not Resolved]
  - Asthenia [Unknown]
